FAERS Safety Report 13377426 (Version 1)
Quarter: 2017Q1

REPORT INFORMATION
  Report Type: Spontaneous
  Country: US (occurrence: US)
  Receive Date: 20170328
  Receipt Date: 20170328
  Transmission Date: 20170429
  Serious: Yes (Death)
  Sender: FDA-Public Use
  Company Number: None

PATIENT
  Age: 45 Year
  Sex: Female

DRUGS (17)
  1. ADCIRCA [Suspect]
     Active Substance: TADALAFIL
     Indication: PRODUCT USED FOR UNKNOWN INDICATION
     Route: 048
  2. OMEPRAZOLE. [Concomitant]
     Active Substance: OMEPRAZOLE
  3. SPRYCEL [Concomitant]
     Active Substance: DASATINIB
  4. DIGOXIN. [Concomitant]
     Active Substance: DIGOXIN
  5. MULTIPLE VITAMINS [Concomitant]
     Active Substance: VITAMINS
  6. ALENDRONATE SODIUM. [Concomitant]
     Active Substance: ALENDRONATE SODIUM
  7. VITAMIN B12 [Concomitant]
     Active Substance: CYANOCOBALAMIN
  8. MINERALS [Concomitant]
     Active Substance: MINERALS
  9. VITAMIN B6 [Concomitant]
     Active Substance: PYRIDOXINE HYDROCHLORIDE
  10. LOMOTIL [Concomitant]
     Active Substance: ATROPINE SULFATE\DIPHENOXYLATE HYDROCHLORIDE
  11. HYDROXYUREA. [Concomitant]
     Active Substance: HYDROXYUREA
  12. DIPYRIDAMOLE. [Concomitant]
     Active Substance: DIPYRIDAMOLE
  13. IRON [Concomitant]
     Active Substance: IRON
  14. COUMADIN [Concomitant]
     Active Substance: WARFARIN SODIUM
  15. VITAMIN D2 [Concomitant]
     Active Substance: ERGOCALCIFEROL
  16. MECLIZINE HCL [Concomitant]
     Active Substance: MECLIZINE HYDROCHLORIDE
  17. CALCIUM [Concomitant]
     Active Substance: CALCIUM

REACTIONS (1)
  - Death [None]
